FAERS Safety Report 16671734 (Version 1)
Quarter: 2019Q3

REPORT INFORMATION
  Report Type: Spontaneous
  Country: US (occurrence: US)
  Receive Date: 20190806
  Receipt Date: 20190806
  Transmission Date: 20191004
  Serious: Yes (Other)
  Sender: FDA-Public Use
  Company Number: US-APOTEX-2019AP019407

PATIENT
  Age: 6 Year
  Sex: Female

DRUGS (13)
  1. ARIPIPRAZOLE. [Suspect]
     Active Substance: ARIPIPRAZOLE
     Indication: AGGRESSION
     Dosage: 5 MG, DAILY
     Route: 065
  2. ARIPIPRAZOLE. [Suspect]
     Active Substance: ARIPIPRAZOLE
     Indication: DISTRACTIBILITY
  3. TOPIRAMATE. [Suspect]
     Active Substance: TOPIRAMATE
     Indication: WEIGHT INCREASED
  4. QUETIAPINE. [Suspect]
     Active Substance: QUETIAPINE
     Indication: AGGRESSION
     Dosage: UNK
     Route: 065
  5. ARIPIPRAZOLE. [Suspect]
     Active Substance: ARIPIPRAZOLE
     Indication: IMPULSIVE BEHAVIOUR
     Dosage: 2 MG, DAILY
     Route: 065
  6. RISPERIDONE. [Suspect]
     Active Substance: RISPERIDONE
     Indication: DISTRACTIBILITY
  7. QUETIAPINE. [Suspect]
     Active Substance: QUETIAPINE
     Indication: DISTRACTIBILITY
  8. CLONIDINE. [Concomitant]
     Active Substance: CLONIDINE
     Indication: AGGRESSION
     Dosage: UNK
     Route: 065
  9. QUETIAPINE. [Suspect]
     Active Substance: QUETIAPINE
     Indication: IMPULSIVE BEHAVIOUR
  10. CLONIDINE. [Concomitant]
     Active Substance: CLONIDINE
     Indication: IMPULSIVE BEHAVIOUR
  11. RISPERIDONE. [Suspect]
     Active Substance: RISPERIDONE
     Indication: AGGRESSION
     Dosage: 0.25 MG, BID
     Route: 065
  12. CLONIDINE. [Concomitant]
     Active Substance: CLONIDINE
     Indication: DISTRACTIBILITY
  13. RISPERIDONE. [Suspect]
     Active Substance: RISPERIDONE
     Indication: IMPULSIVE BEHAVIOUR
     Dosage: 0.5 MG, BID
     Route: 065

REACTIONS (5)
  - Mood swings [Unknown]
  - Therapeutic response decreased [Unknown]
  - Drug intolerance [Unknown]
  - Kidney infection [Unknown]
  - Weight increased [Unknown]
